FAERS Safety Report 19108598 (Version 1)
Quarter: 2021Q2

REPORT INFORMATION
  Report Type: Spontaneous
  Country: US (occurrence: US)
  Receive Date: 20210408
  Receipt Date: 20210408
  Transmission Date: 20210717
  Serious: Yes (Other)
  Sender: FDA-Public Use
  Company Number: US-PFIZER INC-2021345548

PATIENT
  Age: 17 Year
  Sex: Female

DRUGS (4)
  1. BACITRACIN. [Suspect]
     Active Substance: BACITRACIN
     Dosage: UNK
  2. NEOSPORIN [Suspect]
     Active Substance: BACITRACIN ZINC\NEOMYCIN SULFATE\POLYMYXIN B SULFATE
     Dosage: UNK
  3. NEOMYCIN SULFATE. [Suspect]
     Active Substance: NEOMYCIN SULFATE
     Dosage: UNK
  4. POLYMYXIN [Suspect]
     Active Substance: POLYMYXIN
     Dosage: UNK

REACTIONS (1)
  - Anaphylactic reaction [Unknown]
